FAERS Safety Report 17045532 (Version 1)
Quarter: 2019Q4

REPORT INFORMATION
  Report Type: Other
  Country: US (occurrence: US)
  Receive Date: 20191118
  Receipt Date: 20191118
  Transmission Date: 20200122
  Serious: No
  Sender: FDA-Public Use
  Company Number: US-LEADIANT BIOSCIENCES INC-2019STPI000402

PATIENT

DRUGS (13)
  1. CYPROHEPTADIN [Concomitant]
     Active Substance: CYPROHEPTADINE HYDROCHLORIDE
  2. PROMETHAZINE [Concomitant]
     Active Substance: PROMETHAZINE HYDROCHLORIDE
  3. VITAMIN D [COLECALCIFEROL] [Concomitant]
     Active Substance: CHOLECALCIFEROL
  4. CALCITRIOL. [Concomitant]
     Active Substance: CALCITRIOL
  5. RANITIDINE. [Concomitant]
     Active Substance: RANITIDINE
  6. CALCIDOL [ALFACALCIDOL] [Concomitant]
  7. CARNITOR [Concomitant]
     Active Substance: LEVOCARNITINE
  8. CYSTARAN [Suspect]
     Active Substance: CYSTEAMINE HYDROCHLORIDE
     Indication: CYSTINOSIS
     Dosage: 1 DROP, QH AS NEEDED WHILE AWAKE
     Route: 047
     Dates: start: 20170126
  9. CYTRA-K [Concomitant]
     Active Substance: CITRIC ACID MONOHYDRATE\POTASSIUM CITRATE
  10. HEPARIN LOCK FLUSH [Concomitant]
     Active Substance: HEPARIN SODIUM
  11. PROCYSBI [Concomitant]
     Active Substance: CYSTEAMINE BITARTRATE
  12. SODIUM PHOSPHATE [Concomitant]
     Active Substance: SODIUM PHOSPHATE
  13. ZOFRAN [Concomitant]
     Active Substance: ONDANSETRON HYDROCHLORIDE

REACTIONS (1)
  - Allergic reaction to excipient [Not Recovered/Not Resolved]
